FAERS Safety Report 10216586 (Version 1)
Quarter: 2014Q2

REPORT INFORMATION
  Report Type: Report from Study
  Country: GB (occurrence: GB)
  Receive Date: 20140604
  Receipt Date: 20140604
  Transmission Date: 20141212
  Serious: Yes (Other)
  Sender: FDA-Public Use
  Company Number: GB-ABBVIE-14P-167-1242757-00

PATIENT
  Age: 53 Year
  Sex: Male
  Weight: 90 kg

DRUGS (4)
  1. HUMIRA [Suspect]
     Indication: PSORIATIC ARTHROPATHY
     Route: 058
     Dates: start: 20060403
  2. METHOTREXATE [Suspect]
     Indication: PSORIATIC ARTHROPATHY
  3. METHOTREXATE [Suspect]
     Dates: end: 20120731
  4. LEFLUNOMIDE [Concomitant]
     Indication: PSORIATIC ARTHROPATHY

REACTIONS (1)
  - Chills [Unknown]
